FAERS Safety Report 24056493 (Version 1)
Quarter: 2024Q3

REPORT INFORMATION
  Report Type: Spontaneous
  Country: CN (occurrence: CN)
  Receive Date: 20240705
  Receipt Date: 20240705
  Transmission Date: 20241017
  Serious: Yes (Hospitalization)
  Sender: MERCK
  Company Number: CN-009507513-2407CHN001038

PATIENT
  Age: 49 Year
  Sex: Male
  Weight: 76 kg

DRUGS (1)
  1. KEYTRUDA [Suspect]
     Active Substance: PEMBROLIZUMAB
     Indication: Neoplasm
     Dosage: 1 VIAL, Q3D
     Route: 041
     Dates: start: 20240503, end: 20240503

REACTIONS (8)
  - Drug eruption [Recovering/Resolving]
  - Low density lipoprotein abnormal [Unknown]
  - Blood cholesterol abnormal [Unknown]
  - Skin ulcer [Unknown]
  - Skin erosion [Unknown]
  - Alpha hydroxybutyrate dehydrogenase increased [Unknown]
  - Inappropriate schedule of product administration [Unknown]
  - Underdose [Unknown]

NARRATIVE: CASE EVENT DATE: 20240501
